FAERS Safety Report 21388201 (Version 2)
Quarter: 2022Q4

REPORT INFORMATION
  Report Type: Spontaneous
  Country: DE (occurrence: DE)
  Receive Date: 20220928
  Receipt Date: 20221013
  Transmission Date: 20230112
  Serious: Yes (Other)
  Sender: FDA-Public Use
  Company Number: DE-BAXTER-2022BAX020363

PATIENT

DRUGS (24)
  1. DEXAMETHASONE [Suspect]
     Active Substance: DEXAMETHASONE
     Indication: Plasma cell myeloma refractory
     Dosage: FIRST LINE TREATMENT
     Route: 065
     Dates: start: 20130501, end: 20130927
  2. DEXAMETHASONE [Suspect]
     Active Substance: DEXAMETHASONE
     Dosage: FOURTH LINE TREATMENT
     Route: 065
     Dates: start: 20160301, end: 20170215
  3. DEXAMETHASONE [Suspect]
     Active Substance: DEXAMETHASONE
     Dosage: THIRD LINE TREATMENT
     Route: 065
     Dates: start: 20140220, end: 20150601
  4. DEXAMETHASONE [Suspect]
     Active Substance: DEXAMETHASONE
     Dosage: SIXTH LINE TREATMENT
     Route: 065
     Dates: start: 20170718, end: 20170903
  5. DEXAMETHASONE [Suspect]
     Active Substance: DEXAMETHASONE
     Dosage: MOST RECENT LINE TREATMENT, VDT PACE
     Route: 065
     Dates: start: 20220215, end: 20220902
  6. DEXAMETHASONE [Suspect]
     Active Substance: DEXAMETHASONE
     Dosage: FIFTH LINE TREATMENT
     Route: 065
     Dates: start: 20170601, end: 20170612
  7. ETOPOSIDE [Suspect]
     Active Substance: ETOPOSIDE
     Indication: Plasma cell myeloma refractory
     Dosage: MOST RECENT LINE TREATMENT, VDT PACE
     Route: 065
     Dates: start: 20220215, end: 20220902
  8. IXAZOMIB [Suspect]
     Active Substance: IXAZOMIB
     Indication: Plasma cell myeloma refractory
     Dosage: SIXTH LINE TREATMENT
     Route: 065
     Dates: start: 20170718, end: 20170903
  9. DOXORUBICIN [Suspect]
     Active Substance: DOXORUBICIN
     Indication: Plasma cell myeloma refractory
     Dosage: MOST RECENT LINE TREATMENT, VDT PACE
     Route: 065
     Dates: start: 20220215, end: 20220902
  10. CISPLATIN [Suspect]
     Active Substance: CISPLATIN
     Indication: Plasma cell myeloma refractory
     Dosage: MOST RECENT LINE TREATMENT, VDT PACE
     Route: 065
     Dates: start: 20220215, end: 20220902
  11. BELANTAMAB MAFODOTIN [Suspect]
     Active Substance: BELANTAMAB MAFODOTIN
     Indication: Plasma cell myeloma refractory
     Route: 065
  12. BORTEZOMIB [Suspect]
     Active Substance: BORTEZOMIB
     Indication: Plasma cell myeloma refractory
     Dosage: FIFTH LINE TREATMENT
     Route: 065
     Dates: start: 20170601, end: 20170612
  13. BORTEZOMIB [Suspect]
     Active Substance: BORTEZOMIB
     Dosage: MOST RECENT LINE TREATMENT, VDT PACE
     Route: 065
     Dates: start: 20220215, end: 20220902
  14. LENALIDOMIDE [Suspect]
     Active Substance: LENALIDOMIDE
     Indication: Plasma cell myeloma refractory
     Dosage: SIXTH LINE TREATMENT
     Route: 065
     Dates: start: 20170718, end: 20170903
  15. LENALIDOMIDE [Suspect]
     Active Substance: LENALIDOMIDE
     Dosage: FIRST LINE TREATMENT
     Route: 065
     Dates: start: 20130501, end: 20130927
  16. LENALIDOMIDE [Suspect]
     Active Substance: LENALIDOMIDE
     Dosage: THIRD LINE TREATMENT
     Route: 065
     Dates: start: 20140220, end: 20150601
  17. LENALIDOMIDE [Suspect]
     Active Substance: LENALIDOMIDE
     Dosage: FOURTH LINE TREATMENT
     Route: 065
     Dates: start: 20160301, end: 20170215
  18. THALIDOMIDE [Suspect]
     Active Substance: THALIDOMIDE
     Indication: Plasma cell myeloma refractory
     Dosage: MOST RECENT LINE TREATMENT, VDT PACE
     Route: 065
     Dates: start: 20220215, end: 20220902
  19. DEXAMETHASONE [Suspect]
     Active Substance: DEXAMETHASONE
     Indication: Plasma cell myeloma refractory
     Route: 065
  20. CYCLOPHOSPHAMIDE [Suspect]
     Active Substance: CYCLOPHOSPHAMIDE
     Indication: Plasma cell myeloma refractory
     Dosage: MOST RECENT LINE TREATMENT, VDT PACE
     Route: 065
     Dates: start: 20220215, end: 20220902
  21. CYCLOPHOSPHAMIDE [Suspect]
     Active Substance: CYCLOPHOSPHAMIDE
     Dosage: FIRST LINE TREATMENT
     Route: 065
     Dates: start: 20130501, end: 20130927
  22. CYCLOPHOSPHAMIDE [Suspect]
     Active Substance: CYCLOPHOSPHAMIDE
     Dosage: FIFTH LINE TREATMENT.
     Route: 065
     Dates: start: 20170601, end: 20170612
  23. ELOTUZUMAB [Suspect]
     Active Substance: ELOTUZUMAB
  24. POMALIDOMIDE [Suspect]
     Active Substance: POMALIDOMIDE

REACTIONS (1)
  - Disease progression [Unknown]
